FAERS Safety Report 5193398-0 (Version None)
Quarter: 2006Q4

REPORT INFORMATION
  Report Type: 
  Country: None (occurrence: None)
  Receive Date: 20061228
  Receipt Date: 20060403
  Transmission Date: 20070319
  Serious: No
  Sender: FDA-Public Use
  Company Number: US-GLAXOSMITHKLINE-A0600964A

PATIENT
  Sex: Female

DRUGS (1)
  1. FLONASE [Suspect]
     Indication: DRUG USE FOR UNKNOWN INDICATION
     Dosage: 4SPR PER DAY
     Route: 045
     Dates: end: 20040401

REACTIONS (3)
  - EAR DISORDER [None]
  - HYPERSENSITIVITY [None]
  - HYPOACUSIS [None]
